FAERS Safety Report 5183907-X (Version None)
Quarter: 2006Q4

REPORT INFORMATION
  Report Type: 
  Country: None (occurrence: None)
  Receive Date: 20061220
  Receipt Date: 20060227
  Transmission Date: 20070319
  Serious: No
  Sender: FDA-Public Use
  Company Number: US-GLAXOSMITHKLINE-A0595228A

PATIENT
  Age: 29 Year
  Sex: Female

DRUGS (2)
  1. NICODERM CQ [Suspect]
     Dates: start: 20060222
  2. ALBUTEROL [Concomitant]
     Indication: ASTHMA

REACTIONS (3)
  - MUSCLE TIGHTNESS [None]
  - PAIN IN EXTREMITY [None]
  - SENSATION OF PRESSURE [None]
